FAERS Safety Report 20149042 (Version 1)
Quarter: 2021Q4

REPORT INFORMATION
  Report Type: Spontaneous
  Country: US (occurrence: US)
  Receive Date: 20211204
  Receipt Date: 20211204
  Transmission Date: 20220304
  Serious: Yes (Other)
  Sender: FDA-Public Use
  Company Number: US-SANOFI-00878117

PATIENT
  Age: 79 Year
  Sex: Male

DRUGS (1)
  1. TOUJEO [Suspect]
     Active Substance: INSULIN GLARGINE
     Indication: Type 2 diabetes mellitus
     Dosage: 40 IU, HS (DEPENDS ON HIS BLOOD SUGAR READINGS)
     Route: 065

REACTIONS (3)
  - Cataract [Unknown]
  - Myopia [Unknown]
  - Visual impairment [Unknown]
